FAERS Safety Report 10162248 (Version 2)
Quarter: 2014Q2

REPORT INFORMATION
  Report Type: Report from Study
  Country: US (occurrence: US)
  Receive Date: 20140509
  Receipt Date: 20140522
  Transmission Date: 20141212
  Serious: Yes (Death, Other)
  Sender: FDA-Public Use
  Company Number: US-SA-2014SA057672

PATIENT
  Age: 74 Year
  Sex: Female
  Weight: 96.3 kg

DRUGS (14)
  1. CLOFARABINE [Suspect]
     Indication: ACUTE MYELOID LEUKAEMIA
     Route: 065
     Dates: start: 20140402, end: 20140406
  2. BLOOD TRANSFUSION, AUXILIARY PRODUCTS [Concomitant]
  3. LASIX [Concomitant]
  4. ANTIBIOTICS [Concomitant]
  5. TRETINOIN [Concomitant]
  6. ZOFRAN [Concomitant]
     Indication: PREMEDICATION
  7. ALLOPURINOL [Concomitant]
     Dates: start: 20140327
  8. DEXAMETHASONE [Concomitant]
     Indication: PREMEDICATION
  9. VORICONAZOLE [Concomitant]
     Indication: PROPHYLAXIS
  10. ACYCLOVIR [Concomitant]
     Indication: PROPHYLAXIS
  11. VANCOMYCIN [Concomitant]
     Indication: PROPHYLAXIS
  12. MEROPENEM [Concomitant]
  13. PROTONIX [Concomitant]
  14. LOVENOX [Concomitant]

REACTIONS (2)
  - Pneumonia [Not Recovered/Not Resolved]
  - Respiratory failure [Fatal]
